FAERS Safety Report 9817641 (Version 1)
Quarter: 2013Q4

REPORT INFORMATION
  Report Type: Spontaneous
  Country: US (occurrence: None)
  Receive Date: 20131223
  Receipt Date: 20131223
  Transmission Date: 20140711
  Serious: Yes (Other)
  Sender: FDA-Public Use
  Company Number: 220181

PATIENT
  Age: 58 Year
  Sex: Female

DRUGS (5)
  1. PICATO [Suspect]
     Indication: ACTINIC KERATOSIS
     Dosage: (1 IN 1 D), TOPICAL
     Route: 061
     Dates: start: 20130114, end: 20130115
  2. PRODHA EYE (FISH OIL) [Concomitant]
  3. ESTRADIOL (ESTRADIOL) (GEL) [Concomitant]
  4. VIT C [Concomitant]
  5. OSTEO-BI-FLEX (OSTEO BI-FLEX) [Concomitant]

REACTIONS (3)
  - Application site pain [None]
  - Drug administered at inappropriate site [None]
  - Drug administration error [None]
